FAERS Safety Report 18730114 (Version 1)
Quarter: 2021Q1

REPORT INFORMATION
  Report Type: Spontaneous
  Country: US (occurrence: US)
  Receive Date: 20210112
  Receipt Date: 20210112
  Transmission Date: 20210419
  Serious: Yes (Other)
  Sender: FDA-Public Use
  Company Number: None

PATIENT
  Age: 49 Year
  Sex: Male
  Weight: 103.05 kg

DRUGS (10)
  1. SERTRALINE 50 MG [Concomitant]
     Active Substance: SERTRALINE HYDROCHLORIDE
  2. PENLAC [Concomitant]
     Active Substance: CICLOPIROX
  3. SEMAGLUTIDE [Suspect]
     Active Substance: SEMAGLUTIDE
     Indication: TYPE 2 DIABETES MELLITUS
     Dosage: ?          OTHER FREQUENCY:WEEKLY;?
     Route: 058
     Dates: start: 20200922, end: 20201212
  4. ATORVASTATIN 20 MG [Concomitant]
     Active Substance: ATORVASTATIN
  5. GLIPIZIDE 5 MG [Concomitant]
     Active Substance: GLIPIZIDE
  6. ZYRTEC [Concomitant]
     Active Substance: CETIRIZINE HYDROCHLORIDE
  7. METFORMIN 1000 MG BID [Concomitant]
  8. LOSARTAN?HCTZ 50?12.5 MG [Concomitant]
  9. PANTOPRAZOLE 40 MG [Concomitant]
     Active Substance: PANTOPRAZOLE SODIUM
  10. TRESIBA U?100 24 UNITS [Concomitant]

REACTIONS (1)
  - Pancreatitis [None]

NARRATIVE: CASE EVENT DATE: 20201212
